FAERS Safety Report 9411929 (Version 1)
Quarter: 2013Q2

REPORT INFORMATION
  Report Type: Spontaneous
  Country: US (occurrence: None)
  Receive Date: 20130424
  Receipt Date: 20130424
  Transmission Date: 20140414
  Serious: Yes (Hospitalization, Other)
  Sender: FDA-Public Use
  Company Number: AUR-APL-2013-03309

PATIENT
  Age: 77 Year
  Sex: Male

DRUGS (3)
  1. ALENDRONIC ACID (ALENDRONIC ACID) [Suspect]
     Indication: BONE DENSITY DECREASED
     Dosage: 70MG 1 IN 1 WK
  2. ASPIRIN (ACETYLSALICYLIC ACID) [Suspect]
     Indication: PRODUCT USED FOR UNKNOWN INDICATION
  3. OMEPRAZOLE (OMEPRAZOLE) [Concomitant]

REACTIONS (6)
  - Haemoptysis [None]
  - Wrong drug administered [None]
  - Dysphagia [None]
  - Aspiration [None]
  - Laryngeal haemorrhage [None]
  - Dysphagia [None]
